FAERS Safety Report 10519859 (Version 1)
Quarter: 2014Q4

REPORT INFORMATION
  Report Type: Spontaneous
  Country: US (occurrence: None)
  Receive Date: 20141014
  Receipt Date: 20141014
  Transmission Date: 20150528
  Serious: No
  Sender: FDA-Public Use
  Company Number: DL2014-0767

PATIENT
  Age: 26 Year
  Sex: Female

DRUGS (3)
  1. MISOPROLOL [Suspect]
     Active Substance: MISOPROSTOL
     Route: 002
     Dates: start: 20140314
  2. AZITHROMYCIN, 1 GRAM [Concomitant]
  3. MIFEPRISTONE [Suspect]
     Active Substance: MIFEPRISTONE
     Indication: ABORTION INDUCED
     Route: 048
     Dates: start: 20140313

REACTIONS (1)
  - Pregnancy [None]

NARRATIVE: CASE EVENT DATE: 20140328
